FAERS Safety Report 6759109-X (Version None)
Quarter: 2010Q2

REPORT INFORMATION
  Report Type: 
  Country: None (occurrence: None)
  Receive Date: 20100607
  Receipt Date: 20100526
  Transmission Date: 20101027
  Serious: Yes (Hospitalization)
  Sender: FDA-Public Use
  Company Number: US-WYE-H15407210

PATIENT
  Sex: Female
  Weight: 104.42 kg

DRUGS (3)
  1. PRISTIQ [Suspect]
     Indication: DEPRESSION
     Route: 048
     Dates: start: 20091101
  2. PRISTIQ [Suspect]
     Indication: CRYING
  3. VITAMINS [Concomitant]
     Dosage: UNKNOWN

REACTIONS (6)
  - DRUG INEFFECTIVE [None]
  - GAIT DISTURBANCE [None]
  - INTERVERTEBRAL DISC PROTRUSION [None]
  - MALABSORPTION [None]
  - MEDICATION RESIDUE [None]
  - MUSCLE SPASMS [None]
